FAERS Safety Report 8501200-1 (Version None)
Quarter: 2012Q3

REPORT INFORMATION
  Report Type: 
  Country: None (occurrence: None)
  Receive Date: 20120710
  Receipt Date: 20120704
  Transmission Date: 20120928
  Serious: Yes (Other)
  Sender: FDA-Public Use
  Company Number: NL-PFIZER INC-2012161034

PATIENT
  Age: 25 Year
  Sex: Female
  Weight: 56 kg

DRUGS (1)
  1. MEDROXYPROGESTERONE ACETATE [Suspect]
     Indication: CONTRACEPTION
     Dosage: 104 MG, UNK
     Route: 030
     Dates: start: 20120116, end: 20120615

REACTIONS (2)
  - INJECTION SITE HAEMATOMA [None]
  - INJECTION SITE ATROPHY [None]
